APPROVED DRUG PRODUCT: HYDROCODONE BITARTRATE AND ASPIRIN
Active Ingredient: ASPIRIN; HYDROCODONE BITARTRATE
Strength: 500MG;5MG
Dosage Form/Route: TABLET;ORAL
Application: A205479 | Product #001
Applicant: LGM PHARMA SOLUTIONS LLC
Approved: May 28, 2021 | RLD: No | RS: Yes | Type: RX